FAERS Safety Report 7245610-1 (Version None)
Quarter: 2011Q1

REPORT INFORMATION
  Report Type: 
  Country: None (occurrence: None)
  Receive Date: 20110126
  Receipt Date: 20110113
  Transmission Date: 20110831
  Serious: Yes (Hospitalization)
  Sender: FDA-Public Use
  Company Number: PHHY2011IT03243

PATIENT
  Sex: Male

DRUGS (5)
  1. ATENOLOL [Suspect]
     Dosage: 25 MG, QD
     Route: 048
     Dates: start: 20110105, end: 20110107
  2. GARDENALE [Concomitant]
     Dosage: 50 MG, UNK
  3. BLOPRESS [Concomitant]
  4. ATENOLOL [Suspect]
     Indication: HYPERTENSION
     Dosage: 50 MG, QD
     Route: 048
     Dates: start: 20080101, end: 20110104
  5. NORVASC [Concomitant]
     Dosage: 5 MG, UNK

REACTIONS (3)
  - VENTRICULAR FAILURE [None]
  - HYPERTROPHY [None]
  - SINUS BRADYCARDIA [None]
